FAERS Safety Report 17947328 (Version 1)
Quarter: 2020Q2

REPORT INFORMATION
  Report Type: Spontaneous
  Country: US (occurrence: US)
  Receive Date: 20200625
  Receipt Date: 20200625
  Transmission Date: 20200714
  Serious: Yes (Disabling)
  Sender: FDA-Public Use
  Company Number: None

PATIENT
  Age: 47 Year
  Sex: Female
  Weight: 86.4 kg

DRUGS (1)
  1. METFORMIN HCL ER 500MG TABLETS [Suspect]
     Active Substance: METFORMIN HYDROCHLORIDE
     Indication: GLUCOSE TOLERANCE IMPAIRED
     Dosage: ?          QUANTITY:2 TABLET(S);OTHER FREQUENCY:AT DINNER;?
     Route: 048
     Dates: start: 20200128, end: 20200428

REACTIONS (4)
  - Liver function test abnormal [None]
  - Product contamination chemical [None]
  - Carcinogenicity [None]
  - Recalled product administered [None]

NARRATIVE: CASE EVENT DATE: 20200506
